FAERS Safety Report 5648717-5 (Version None)
Quarter: 2008Q1

REPORT INFORMATION
  Report Type: 
  Country: None (occurrence: None)
  Receive Date: 20080303
  Receipt Date: 20080303
  Transmission Date: 20080703
  Serious: Yes (Hospitalization)
  Sender: FDA-Public Use
  Company Number: None

PATIENT
  Age: 81 Year
  Sex: Male

DRUGS (2)
  1. SUNITINIB [Suspect]
     Indication: GASTROINTESTINAL STROMAL TUMOUR
     Dosage: 50MG EVERY DAY PO
     Route: 048
     Dates: start: 20080213, end: 20080226
  2. SUNITINIB [Suspect]
     Indication: PROSTATE CANCER
     Dosage: 50MG EVERY DAY PO
     Route: 048
     Dates: start: 20080213, end: 20080226

REACTIONS (1)
  - DYSPNOEA [None]
